FAERS Safety Report 13305066 (Version 1)
Quarter: 2017Q1

REPORT INFORMATION
  Report Type: Spontaneous
  Country: US (occurrence: US)
  Receive Date: 20170308
  Receipt Date: 20170308
  Transmission Date: 20170428
  Serious: No
  Sender: FDA-Public Use
  Company Number: US-PFIZER INC-2017101713

PATIENT
  Age: 54 Year
  Sex: Female
  Weight: 69.85 kg

DRUGS (2)
  1. GABAPENTIN. [Suspect]
     Active Substance: GABAPENTIN
     Dosage: 300 MG, 3X/DAY
     Route: 048
     Dates: start: 2016
  2. LOSARTAN POTASSIUM. [Concomitant]
     Active Substance: LOSARTAN POTASSIUM
     Indication: HYPERTENSION
     Dosage: 100 MG, 1X/DAY (100MG PILL BY MOUTH ONCE A DAY)
     Route: 048
     Dates: start: 201510

REACTIONS (3)
  - Drug hypersensitivity [Unknown]
  - Peripheral swelling [Unknown]
  - Vitreous floaters [Unknown]

NARRATIVE: CASE EVENT DATE: 2016
